FAERS Safety Report 6748791-9 (Version None)
Quarter: 2010Q2

REPORT INFORMATION
  Report Type: 
  Country: None (occurrence: None)
  Receive Date: 20100601
  Receipt Date: 20100519
  Transmission Date: 20101027
  Serious: Yes (Other)
  Sender: FDA-Public Use
  Company Number: PHHY2010US33754

PATIENT
  Age: 16 Year
  Sex: Female

DRUGS (5)
  1. CYCLOSPORINE [Suspect]
     Indication: PROPHYLAXIS AGAINST GRAFT VERSUS HOST DISEASE
  2. CYCLOSPORINE [Suspect]
     Indication: STEM CELL TRANSPLANT
  3. PREDNISONE TAB [Concomitant]
     Indication: PROPHYLAXIS AGAINST GRAFT VERSUS HOST DISEASE
  4. NEUPOGEN [Concomitant]
  5. PHENYTOIN [Concomitant]
     Indication: CONVULSION PROPHYLAXIS

REACTIONS (5)
  - CHRONIC GRAFT VERSUS HOST DISEASE [None]
  - CYTOMEGALOVIRUS VIRAEMIA [None]
  - DEAFNESS NEUROSENSORY [None]
  - INFARCTION [None]
  - OVARIAN FAILURE [None]
